FAERS Safety Report 20243908 (Version 1)
Quarter: 2021Q4

REPORT INFORMATION
  Report Type: Spontaneous
  Country: PL (occurrence: PL)
  Receive Date: 20211228
  Receipt Date: 20211228
  Transmission Date: 20220303
  Serious: Yes (Hospitalization)
  Sender: FDA-Public Use
  Company Number: PL-Orion Corporation ORION PHARMA-QUET2021-0027

PATIENT
  Age: 35 Year
  Sex: Male

DRUGS (7)
  1. PAROXETINE [Suspect]
     Active Substance: PAROXETINE
     Indication: Bipolar disorder
     Dosage: 20 MILLIGRAM, ONCE A DAY
     Route: 065
  2. QUETIAPINE [Suspect]
     Active Substance: QUETIAPINE
     Indication: Bipolar disorder
     Dosage: 300 MILLIGRAM, ONCE A DAY
     Route: 065
  3. VALPROATE SODIUM [Suspect]
     Active Substance: VALPROATE SODIUM
     Indication: Bipolar disorder
     Dosage: 1500 MILLIGRAM, ONCE A DAY
     Route: 065
  4. VALPROATE SODIUM [Suspect]
     Active Substance: VALPROATE SODIUM
     Dosage: 1000 MILLIGRAM
     Route: 065
  5. LITHIUM [Suspect]
     Active Substance: LITHIUM
     Indication: Bipolar disorder
     Dosage: 1250 MILLIGRAM, ONCE A DAY
     Route: 065
     Dates: start: 2014
  6. RISPERIDONE [Suspect]
     Active Substance: RISPERIDONE
     Indication: Bipolar disorder
     Dosage: 1 MILLIGRAM
     Route: 065
  7. RISPERIDONE [Suspect]
     Active Substance: RISPERIDONE
     Dosage: 2 MILLIGRAM, ONCE A DAY
     Route: 065

REACTIONS (2)
  - COVID-19 [Recovered/Resolved]
  - Procedural pain [Recovered/Resolved]
